FAERS Safety Report 8171324-X (Version None)
Quarter: 2012Q1

REPORT INFORMATION
  Report Type: 
  Country: None (occurrence: None)
  Receive Date: 20120228
  Receipt Date: 20120221
  Transmission Date: 20120608
  Serious: Yes (Hospitalization, Other)
  Sender: FDA-Public Use
  Company Number: US-ABBOTT-11P-163-0729731-00

PATIENT
  Sex: Female
  Weight: 86.26 kg

DRUGS (7)
  1. HUMIRA [Suspect]
     Indication: RHEUMATOID ARTHRITIS
     Dates: start: 20040101, end: 20101021
  2. PREDNISONE TAB [Concomitant]
     Indication: RHEUMATOID ARTHRITIS
  3. PREDNISONE TAB [Concomitant]
     Indication: ANKYLOSING SPONDYLITIS
  4. METHOTREXATE [Concomitant]
     Indication: ANKYLOSING SPONDYLITIS
  5. MOBIC [Concomitant]
     Indication: RHEUMATOID ARTHRITIS
  6. HUMIRA [Suspect]
     Indication: ANKYLOSING SPONDYLITIS
  7. METHOTREXATE [Concomitant]
     Indication: RHEUMATOID ARTHRITIS

REACTIONS (13)
  - PAIN IN EXTREMITY [None]
  - ROAD TRAFFIC ACCIDENT [None]
  - NERVE INJURY [None]
  - THYROID NEOPLASM [None]
  - INTERVERTEBRAL DISC DEGENERATION [None]
  - PULMONARY EMBOLISM [None]
  - HYPOAESTHESIA [None]
  - INTERVERTEBRAL DISC PROTRUSION [None]
  - ARTHRALGIA [None]
  - OEDEMA PERIPHERAL [None]
  - DYSPNOEA [None]
  - FATIGUE [None]
  - BACK PAIN [None]
